FAERS Safety Report 10330652 (Version 2)
Quarter: 2014Q3

REPORT INFORMATION
  Report Type: Spontaneous
  Country: AU (occurrence: AU)
  Receive Date: 20140722
  Receipt Date: 20140722
  Transmission Date: 20150326
  Serious: No
  Sender: FDA-Public Use
  Company Number: PHHY2009AU35135

PATIENT
  Sex: Male

DRUGS (8)
  1. DIAMICRON [Concomitant]
     Active Substance: GLICLAZIDE
  2. ZOTON [Interacting]
     Active Substance: LANSOPRAZOLE
  3. PRAVACHOL [Concomitant]
     Active Substance: PRAVASTATIN SODIUM
  4. TASIGNA [Suspect]
     Active Substance: NILOTINIB
     Indication: CHRONIC MYELOID LEUKAEMIA
     Dosage: 400 MG, BID
     Route: 048
     Dates: start: 200902
  5. ATACAND [Concomitant]
     Active Substance: CANDESARTAN CILEXETIL
  6. CARTIA                                  /AUS/ [Concomitant]
     Active Substance: ASPIRIN
  7. TASIGNA [Interacting]
     Active Substance: NILOTINIB
     Dosage: UNK UKN, UNK
  8. CARDIZEM [Concomitant]
     Active Substance: DILTIAZEM HYDROCHLORIDE

REACTIONS (12)
  - Weight increased [Unknown]
  - Decreased appetite [Unknown]
  - Weight decreased [Unknown]
  - Frequent bowel movements [Unknown]
  - Rash [Not Recovered/Not Resolved]
  - Peripheral swelling [Not Recovered/Not Resolved]
  - Joint swelling [Not Recovered/Not Resolved]
  - Alopecia [Unknown]
  - Chest pain [Unknown]
  - Drug interaction [Unknown]
  - Fatigue [Not Recovered/Not Resolved]
  - Constipation [Unknown]
